FAERS Safety Report 4359700-4 (Version None)
Quarter: 2004Q2

REPORT INFORMATION
  Report Type: 
  Country: None (occurrence: None)
  Receive Date: 20040513
  Receipt Date: 20040427
  Transmission Date: 20050107
  Serious: Yes (Hospitalization)
  Sender: FDA-Public Use
  Company Number: 2004211527JP

PATIENT
  Age: 55 Year
  Sex: Male

DRUGS (1)
  1. MEDROL [Suspect]
     Indication: KIDNEY TRANSPLANT REJECTION
     Dosage: ORAL
     Route: 048
     Dates: start: 19970301

REACTIONS (2)
  - CLEAR CELL CARCINOMA OF THE KIDNEY [None]
  - RENAL CYST [None]
